FAERS Safety Report 8809868 (Version 27)
Quarter: 2019Q1

REPORT INFORMATION
  Report Type: Report from Study
  Country: CA (occurrence: CA)
  Receive Date: 20120926
  Receipt Date: 20190221
  Transmission Date: 20190418
  Serious: Yes (Other)
  Sender: FDA-Public Use
  Company Number: CA-ROCHE-1131737

PATIENT
  Age: 70 Year
  Sex: Female
  Weight: 115 kg

DRUGS (19)
  1. CALCIUM D 500 [Concomitant]
     Active Substance: CALCIUM\VITAMIN D
     Route: 048
  2. AVELOX [Concomitant]
     Active Substance: MOXIFLOXACIN HYDROCHLORIDE
  3. FLAGYL [Concomitant]
     Active Substance: METRONIDAZOLE\METRONIDAZOLE HYDROCHLORIDE
     Dosage: FOR 14 DAY
     Route: 065
     Dates: start: 201902
  4. FOLIC ACID. [Concomitant]
     Active Substance: FOLIC ACID
     Route: 048
  5. ACTEMRA [Suspect]
     Active Substance: TOCILIZUMAB
     Route: 042
     Dates: start: 20150108
  6. NORVASC [Concomitant]
     Active Substance: AMLODIPINE BESYLATE
  7. IMOVANE [Concomitant]
     Active Substance: ZOPICLONE
  8. ACTEMRA [Suspect]
     Active Substance: TOCILIZUMAB
     Indication: RHEUMATOID ARTHRITIS
     Route: 042
     Dates: start: 20101111
  9. ACTEMRA [Suspect]
     Active Substance: TOCILIZUMAB
     Route: 042
     Dates: start: 20130919
  10. CELEBREX [Concomitant]
     Active Substance: CELECOXIB
     Route: 048
  11. PREDNISONE. [Concomitant]
     Active Substance: PREDNISONE
     Route: 065
  12. CIPRO [Concomitant]
     Active Substance: CIPROFLOXACIN HYDROCHLORIDE
  13. ACTEMRA [Suspect]
     Active Substance: TOCILIZUMAB
     Route: 042
  14. METHOTREXATE. [Suspect]
     Active Substance: METHOTREXATE
     Indication: RHEUMATOID ARTHRITIS
     Route: 058
  15. ACTEMRA [Suspect]
     Active Substance: TOCILIZUMAB
     Route: 042
     Dates: start: 2008
  16. METHOTREXATE. [Suspect]
     Active Substance: METHOTREXATE
     Route: 065
     Dates: end: 2017
  17. PANTOLOC [Concomitant]
     Active Substance: PANTOPRAZOLE SODIUM
     Route: 065
  18. PAXIL (CANADA) [Concomitant]
  19. ACTEMRA [Suspect]
     Active Substance: TOCILIZUMAB
     Route: 042
     Dates: start: 20111020

REACTIONS (31)
  - Oedema peripheral [Not Recovered/Not Resolved]
  - Bronchitis [Unknown]
  - Secretion discharge [Unknown]
  - Chest discomfort [Unknown]
  - Injection site haemorrhage [Unknown]
  - Oral herpes [Recovered/Resolved]
  - Heart rate decreased [Unknown]
  - Dyspnoea [Unknown]
  - Lung disorder [Unknown]
  - Gastrointestinal infection [Unknown]
  - Fall [Unknown]
  - Lymphoma [Not Recovered/Not Resolved]
  - Pulmonary fibrosis [Unknown]
  - Weight decreased [Not Recovered/Not Resolved]
  - Pain in extremity [Unknown]
  - Arthralgia [Unknown]
  - Oxygen saturation decreased [Unknown]
  - Skin laceration [Not Recovered/Not Resolved]
  - Spinal compression fracture [Recovering/Resolving]
  - Weight increased [Unknown]
  - Oxygen saturation decreased [Unknown]
  - Insomnia [Unknown]
  - Blood pressure increased [Unknown]
  - Limb discomfort [Recovered/Resolved]
  - Toxicity to various agents [Unknown]
  - Infusion related reaction [Unknown]
  - Influenza like illness [Unknown]
  - Pulmonary fibrosis [Not Recovered/Not Resolved]
  - Pseudolymphoma [Unknown]
  - Herpes zoster [Recovered/Resolved]
  - Nasopharyngitis [Unknown]

NARRATIVE: CASE EVENT DATE: 20120831
